FAERS Safety Report 6180352-5 (Version None)
Quarter: 2009Q2

REPORT INFORMATION
  Report Type: 
  Country: None (occurrence: None)
  Receive Date: 20090506
  Receipt Date: 20090424
  Transmission Date: 20091009
  Serious: Yes (Disabling)
  Sender: FDA-Public Use
  Company Number: NO-PFIZER INC-2009203692

PATIENT

DRUGS (3)
  1. SINEQUAN [Suspect]
     Indication: DEPRESSION
     Route: 048
  2. SOBRIL [Concomitant]
  3. VIVAL [Concomitant]

REACTIONS (1)
  - ANOSMIA [None]
